FAERS Safety Report 4344403-2 (Version None)
Quarter: 2004Q2

REPORT INFORMATION
  Report Type: 
  Country: None (occurrence: None)
  Receive Date: 20040421
  Receipt Date: 20040421
  Transmission Date: 20050107
  Serious: Yes (Hospitalization)
  Sender: FDA-Public Use
  Company Number: None

PATIENT
  Age: 65 Year
  Sex: Male
  Weight: 73 kg

DRUGS (5)
  1. ASPIRIN [Suspect]
     Indication: MULTIPLE SCLEROSIS
     Dosage: 2/DAY
     Dates: start: 19750101
  2. ALEVE [Suspect]
     Indication: BACK PAIN
     Dosage: 2/DAY X 5 DAYS ~ 2 MONTHS AGO
  3. VIT E [Concomitant]
  4. VIT C [Concomitant]
  5. VIT B12 [Concomitant]

REACTIONS (5)
  - FAECAL OCCULT BLOOD POSITIVE [None]
  - FAECES DISCOLOURED [None]
  - HAEMATEMESIS [None]
  - HAEMORRHAGE [None]
  - LOOSE STOOLS [None]
